FAERS Safety Report 10693655 (Version 5)
Quarter: 2015Q1

REPORT INFORMATION
  Report Type: Report from Study
  Country: US (occurrence: US)
  Receive Date: 20150106
  Receipt Date: 20150323
  Transmission Date: 20150721
  Serious: Yes (Other)
  Sender: FDA-Public Use
  Company Number: US-SA-2015SA000250

PATIENT
  Age: 59 Year
  Sex: Female
  Weight: 94.34 kg

DRUGS (12)
  1. AUBAGIO [Suspect]
     Active Substance: TERIFLUNOMIDE
     Indication: MULTIPLE SCLEROSIS
     Route: 048
     Dates: start: 20141209, end: 20150121
  2. VITAMIN D [Concomitant]
     Active Substance: CHOLECALCIFEROL
     Dosage: 150G A WEEK
  3. SYNTHROID [Concomitant]
     Active Substance: LEVOTHYROXINE SODIUM
     Indication: HYPOTHYROIDISM
  4. CYMBALTA [Concomitant]
     Active Substance: DULOXETINE HYDROCHLORIDE
     Indication: DEPRESSION
  5. CLONAZEPAM. [Concomitant]
     Active Substance: CLONAZEPAM
     Indication: MUSCLE SPASMS
  6. CELEBREX [Concomitant]
     Active Substance: CELECOXIB
     Indication: ARTHRITIS
  7. ZOLOFT [Concomitant]
     Active Substance: SERTRALINE HYDROCHLORIDE
     Indication: ANXIETY
     Dosage: ONE AND A HALF A DAY
  8. BACLOFEN. [Concomitant]
     Active Substance: BACLOFEN
     Indication: MUSCLE SPASMS
  9. ASPIRIN. [Concomitant]
     Active Substance: ASPIRIN
     Dosage: 1 PM
  10. LYRICA [Concomitant]
     Active Substance: PREGABALIN
  11. SIMVASTATIN. [Concomitant]
     Active Substance: SIMVASTATIN
     Indication: BLOOD CHOLESTEROL
     Dosage: 1 PM
  12. OXYBUTYNIN [Concomitant]
     Active Substance: OXYBUTYNIN
     Indication: URINARY INCONTINENCE
     Dosage: 1 PM

REACTIONS (15)
  - Gastrointestinal sounds abnormal [Unknown]
  - Diarrhoea [Recovered/Resolved]
  - Weight decreased [Unknown]
  - Alopecia [Recovered/Resolved]
  - Seizure [Unknown]
  - Crying [Unknown]
  - Contusion [Recovered/Resolved]
  - Abdominal pain upper [Recovered/Resolved]
  - Insomnia [Recovering/Resolving]
  - Swelling [Unknown]
  - Lethargy [Unknown]
  - Abdominal distension [Recovered/Resolved]
  - Malaise [Recovered/Resolved]
  - Fall [Unknown]
  - Abdominal discomfort [Recovered/Resolved]

NARRATIVE: CASE EVENT DATE: 201412
